FAERS Safety Report 18962796 (Version 1)
Quarter: 2021Q1

REPORT INFORMATION
  Report Type: Spontaneous
  Country: US (occurrence: US)
  Receive Date: 20210302
  Receipt Date: 20210302
  Transmission Date: 20210420
  Serious: No
  Sender: FDA-Public Use
  Company Number: None

PATIENT
  Age: 18 Year
  Sex: Male
  Weight: 53.98 kg

DRUGS (10)
  1. ATROVENT [Concomitant]
     Active Substance: IPRATROPIUM BROMIDE
  2. MIRALAX [Concomitant]
     Active Substance: POLYETHYLENE GLYCOL 3350
  3. RIZATRIPTAN. [Concomitant]
     Active Substance: RIZATRIPTAN
  4. OXCARBAZEPINE. [Concomitant]
     Active Substance: OXCARBAZEPINE
  5. OMEPRAZOLE. [Concomitant]
     Active Substance: OMEPRAZOLE
  6. LEVALBUTEROL 0.63MG [Suspect]
     Active Substance: LEVALBUTEROL
     Indication: COUGH
     Dosage: NEBULIZIED
  7. VITAMIN D [Concomitant]
     Active Substance: VITAMIN D NOS
  8. FLOVENT HFA [Concomitant]
     Active Substance: FLUTICASONE PROPIONATE
  9. GLYCOPYRULATE [Concomitant]
  10. XOPENEX HFA [Concomitant]
     Active Substance: LEVALBUTEROL TARTRATE

REACTIONS (2)
  - Secondary tic [None]
  - Product substitution issue [None]
